FAERS Safety Report 18037523 (Version 3)
Quarter: 2020Q4

REPORT INFORMATION
  Report Type: Spontaneous
  Country: JP (occurrence: JP)
  Receive Date: 20200717
  Receipt Date: 20201109
  Transmission Date: 20210113
  Serious: Yes (Death, Life-Threatening, Hospitalization, Other)
  Sender: FDA-Public Use
  Company Number: JP-PFIZER INC-2020272068

PATIENT
  Age: 49 Year
  Sex: Male
  Weight: 68 kg

DRUGS (4)
  1. VFEND [Suspect]
     Active Substance: VORICONAZOLE
     Indication: ENCEPHALITIS FUNGAL
     Dosage: 360 MG, 2X/DAY
     Route: 042
     Dates: start: 20200623, end: 20200718
  2. PREVYMIS [Suspect]
     Active Substance: LETERMOVIR
     Indication: ANTIVIRAL PROPHYLAXIS
     Dosage: 480 MG, 1X/DAY
     Route: 042
     Dates: start: 20200624, end: 20200626
  3. VFEND [Suspect]
     Active Substance: VORICONAZOLE
     Dosage: UNK (6 OR 8 MG/KG)
  4. CANCIDAS [Concomitant]
     Active Substance: CASPOFUNGIN ACETATE
     Indication: ENCEPHALITIS FUNGAL
     Dosage: 50 MG, 1X/DAY
     Route: 042
     Dates: start: 20200624, end: 20200707

REACTIONS (3)
  - Drug level decreased [Recovering/Resolving]
  - Dyspnoea [Fatal]
  - Subarachnoid haemorrhage [Fatal]

NARRATIVE: CASE EVENT DATE: 20200712
